FAERS Safety Report 10081978 (Version 1)
Quarter: 2014Q2

REPORT INFORMATION
  Report Type: Spontaneous
  Country: US (occurrence: None)
  Receive Date: 20140414
  Receipt Date: 20140414
  Transmission Date: 20141212
  Serious: Yes (Other)
  Sender: FDA-Public Use
  Company Number: ASR-2014-00579

PATIENT
  Age: 36 Year
  Sex: Female
  Weight: 50.8 kg

DRUGS (3)
  1. LIORESAL [Suspect]
  2. PAIN MEDICATION [Suspect]
  3. ORAL MEDICATIONS [Suspect]

REACTIONS (10)
  - Implant site swelling [None]
  - Feeling hot [None]
  - Pyrexia [None]
  - Pain of skin [None]
  - Hypoaesthesia [None]
  - Device leakage [None]
  - Device dislocation [None]
  - Muscle spasticity [None]
  - Cerebrospinal fluid leakage [None]
  - Suture rupture [None]
